FAERS Safety Report 20557197 (Version 1)
Quarter: 2022Q1

REPORT INFORMATION
  Report Type: Spontaneous
  Country: IN (occurrence: IN)
  Receive Date: 20220307
  Receipt Date: 20220307
  Transmission Date: 20220424
  Serious: Yes (Other)
  Sender: FDA-Public Use
  Company Number: IN-SUN PHARMACEUTICAL INDUSTRIES LTD-2022R1-324832

PATIENT
  Age: 50 Year
  Sex: Male

DRUGS (1)
  1. AMPHOTERICIN B [Suspect]
     Active Substance: AMPHOTERICIN B
     Indication: Histoplasmosis disseminated
     Dosage: 18 MILLIGRAM, DAILY
     Route: 042

REACTIONS (2)
  - Ototoxicity [Recovered/Resolved]
  - Deafness neurosensory [Recovered/Resolved]
